FAERS Safety Report 8082956-1 (Version None)
Quarter: 2012Q1

REPORT INFORMATION
  Report Type: 
  Country: None (occurrence: None)
  Receive Date: 20120127
  Receipt Date: 20110308
  Transmission Date: 20120608
  Serious: No
  Sender: FDA-Public Use
  Company Number: US-ABBOTT-11P-163-0710138-00

PATIENT
  Age: 48 Year
  Sex: Female

DRUGS (20)
  1. SPIRONOLACTONE [Concomitant]
     Indication: HYPERTENSION
     Route: 048
  2. FLUOCINOLONE ACETONIDE [Concomitant]
     Indication: PSORIATIC ARTHROPATHY
  3. PRIMCINOLONE ACETONIDE [Concomitant]
     Indication: PRODUCT USED FOR UNKNOWN INDICATION
  4. LIDODERM [Concomitant]
     Indication: PRODUCT USED FOR UNKNOWN INDICATION
     Dosage: PATCHES 12HR ON/12HR OFF TO KNEE/BACK
  5. CINRYZE [Concomitant]
     Indication: BLOOD DISORDER
  6. HUMIRA [Suspect]
     Indication: RHEUMATOID ARTHRITIS
     Dates: start: 20080101
  7. OXYCODONE HCL [Concomitant]
     Indication: PAIN
     Dosage: 10/325MG EVERY 6 HOURS
     Route: 048
  8. PAXIL CR [Concomitant]
     Indication: ANXIETY
     Route: 048
  9. MOBIC [Concomitant]
     Indication: PAIN
     Dosage: AT BEDTIME
     Route: 048
  10. METFFORMIN HYDROCHLORIDE [Concomitant]
     Indication: DIABETES MELLITUS
     Route: 048
  11. BENTYL [Concomitant]
     Indication: ABDOMINAL PAIN UPPER
     Route: 048
  12. LYRICA [Concomitant]
     Indication: NERVOUSNESS
     Route: 048
  13. LOVAZA [Concomitant]
     Indication: LIVER DISORDER
     Dosage: TWO 1 GRAM TABS TWICE A DAY
     Route: 048
  14. SOMA [Concomitant]
     Indication: MUSCLE RELAXANT THERAPY
     Route: 048
  15. TOPROL-XL [Concomitant]
     Indication: HYPERTENSION
     Route: 048
  16. ACTOS [Concomitant]
     Indication: DIABETES MELLITUS
     Route: 048
  17. CATAPRES [Concomitant]
     Indication: HYPERTENSION
     Route: 048
  18. PROTONIX [Concomitant]
     Indication: GASTROOESOPHAGEAL REFLUX DISEASE
     Dosage: 40MG TWO TABS DAILY
     Route: 048
  19. COMPAZINE [Concomitant]
     Indication: NAUSEA
     Dosage: PR TWICE A DAY AS NEEDED
  20. TRAZODONE HCL [Concomitant]
     Indication: INSOMNIA
     Dosage: AT BEDTIME
     Route: 048

REACTIONS (3)
  - DEVICE MALFUNCTION [None]
  - NASOPHARYNGITIS [None]
  - DRUG DOSE OMISSION [None]
